FAERS Safety Report 12682062 (Version 1)
Quarter: 2016Q3

REPORT INFORMATION
  Report Type: Report from Study
  Country: US (occurrence: US)
  Receive Date: 20160824
  Receipt Date: 20160824
  Transmission Date: 20161109
  Serious: Yes (Other)
  Sender: FDA-Public Use
  Company Number: US-BIOGEN-2016BI00282166

PATIENT
  Sex: Female

DRUGS (2)
  1. AVONEX [Suspect]
     Active Substance: INTERFERON BETA-1A
     Indication: MULTIPLE SCLEROSIS
     Route: 065
     Dates: start: 20131122
  2. AVONEX [Suspect]
     Active Substance: INTERFERON BETA-1A
     Route: 030
     Dates: start: 20150906

REACTIONS (7)
  - Tremor [Recovered/Resolved]
  - Blindness [Unknown]
  - Fall [Recovered/Resolved]
  - Rash [Recovered/Resolved]
  - Muscle spasms [Recovered/Resolved]
  - Visual impairment [Recovered/Resolved]
  - Gait disturbance [Recovered/Resolved]
